FAERS Safety Report 7108452-3 (Version None)
Quarter: 2010Q4

REPORT INFORMATION
  Report Type: 
  Country: None (occurrence: None)
  Receive Date: 20101117
  Receipt Date: 20101109
  Transmission Date: 20110411
  Serious: Yes (Hospitalization)
  Sender: FDA-Public Use
  Company Number: B0684068A

PATIENT
  Sex: Female

DRUGS (2)
  1. AUGMENTIN '125' [Suspect]
     Route: 048
     Dates: start: 20101108
  2. MUCODYNE [Concomitant]
     Route: 048

REACTIONS (4)
  - CHILLS [None]
  - GENERALISED ERYTHEMA [None]
  - HEADACHE [None]
  - VOMITING [None]
